FAERS Safety Report 14161268 (Version 1)
Quarter: 2017Q4

REPORT INFORMATION
  Report Type: Spontaneous
  Country: RU (occurrence: RU)
  Receive Date: 20171106
  Receipt Date: 20171106
  Transmission Date: 20180321
  Serious: Yes (Other)
  Sender: FDA-Public Use
  Company Number: RU-ASTRAZENECA-2017SF12090

PATIENT
  Age: 79 Year
  Sex: Male
  Weight: 81 kg

DRUGS (4)
  1. EGILOK [Concomitant]
     Active Substance: METOPROLOL TARTRATE
  2. THROMBO ASS [Concomitant]
     Active Substance: ASPIRIN
  3. BRILINTA [Suspect]
     Active Substance: TICAGRELOR
     Indication: MYOCARDIAL INFARCTION
     Route: 048
     Dates: start: 201705
  4. PRESTANCE [Concomitant]
     Active Substance: AMLODIPINE BESYLATE\PERINDOPRIL ARGININE

REACTIONS (4)
  - Feeling cold [Recovered/Resolved]
  - Arrhythmia [Recovered/Resolved]
  - Erythema [Recovered/Resolved]
  - Blood pressure increased [Recovered/Resolved]
